FAERS Safety Report 16321813 (Version 1)
Quarter: 2019Q2

REPORT INFORMATION
  Report Type: Spontaneous
  Country: US (occurrence: US)
  Receive Date: 20190516
  Receipt Date: 20190516
  Transmission Date: 20190711
  Serious: Yes (Death, Other)
  Sender: FDA-Public Use
  Company Number: US-PFIZER INC-2019206093

PATIENT
  Sex: Male

DRUGS (1)
  1. ATROPINE SULFATE. [Suspect]
     Active Substance: ATROPINE SULFATE
     Dosage: 0.8 MG, UNK
     Route: 064

REACTIONS (4)
  - Tachycardia foetal [Fatal]
  - Baseline foetal heart rate variability disorder [Fatal]
  - Maternal exposure during delivery [Fatal]
  - Foetal heart rate deceleration abnormality [Fatal]
